FAERS Safety Report 4416569-7 (Version None)
Quarter: 2004Q3

REPORT INFORMATION
  Report Type: 
  Country: None (occurrence: None)
  Receive Date: 20040802
  Receipt Date: 20040720
  Transmission Date: 20050211
  Serious: Yes (Hospitalization)
  Sender: FDA-Public Use
  Company Number: FR-JNJFOC-20040705323

PATIENT
  Age: 61 Year
  Sex: Female
  Weight: 60 kg

DRUGS (6)
  1. REMICADE [Suspect]
     Indication: RHEUMATOID ARTHRITIS
     Dosage: SEE IMAGE
     Route: 042
     Dates: start: 20020201, end: 20030901
  2. REMICADE [Suspect]
     Indication: RHEUMATOID ARTHRITIS
     Dosage: SEE IMAGE
     Route: 042
     Dates: start: 20040527, end: 20040527
  3. REMICADE [Suspect]
     Indication: RHEUMATOID ARTHRITIS
     Dosage: SEE IMAGE
     Route: 042
     Dates: start: 20040628, end: 20040628
  4. PREDNISONE TAB [Concomitant]
  5. INDOMETHACIN [Concomitant]
  6. METHOTREXATE [Concomitant]

REACTIONS (6)
  - EYELID OEDEMA [None]
  - FACE OEDEMA [None]
  - HYPOTENSION [None]
  - INFUSION RELATED REACTION [None]
  - MALAISE [None]
  - URTICARIA [None]
